FAERS Safety Report 5887292-7 (Version None)
Quarter: 2008Q3

REPORT INFORMATION
  Report Type: 
  Country: None (occurrence: None)
  Receive Date: 20080915
  Receipt Date: 20080902
  Transmission Date: 20090109
  Serious: Yes (Hospitalization)
  Sender: FDA-Public Use
  Company Number: 238316J08USA

PATIENT
  Age: 51 Year
  Sex: Female

DRUGS (1)
  1. REBIF [Suspect]
     Indication: MULTIPLE SCLEROSIS
     Dosage: 44 MCG, 3 IN 1 WEEKS, SUBCUTANEOUS
     Route: 058
     Dates: start: 20080805, end: 20080801

REACTIONS (8)
  - CHILLS [None]
  - DIARRHOEA [None]
  - GASTROINTESTINAL INFECTION [None]
  - LABORATORY TEST ABNORMAL [None]
  - MALAISE [None]
  - PAIN [None]
  - PYREXIA [None]
  - VOMITING [None]
